FAERS Safety Report 6992756-9 (Version None)
Quarter: 2010Q3

REPORT INFORMATION
  Report Type: 
  Country: None (occurrence: None)
  Receive Date: 20100917
  Receipt Date: 20100908
  Transmission Date: 20110219
  Serious: Yes (Other)
  Sender: FDA-Public Use
  Company Number: A0833492A

PATIENT
  Sex: Female
  Weight: 67.3 kg

DRUGS (4)
  1. AVANDIA [Suspect]
     Indication: DIABETES MELLITUS
     Route: 048
  2. GLIPIZIDE [Concomitant]
  3. METFORMIN [Concomitant]
  4. INSULIN [Concomitant]

REACTIONS (1)
  - HEPATIC FAILURE [None]
